FAERS Safety Report 9696835 (Version 1)
Quarter: 2013Q4

REPORT INFORMATION
  Report Type: Spontaneous
  Country: US (occurrence: US)
  Receive Date: 20131119
  Receipt Date: 20131119
  Transmission Date: 20140711
  Serious: No
  Sender: FDA-Public Use
  Company Number: US-GILEAD-2007-0013549

PATIENT
  Age: 58 Year
  Sex: Female
  Weight: 54.43 kg

DRUGS (9)
  1. LETAIRIS [Suspect]
     Indication: PULMONARY ARTERIAL HYPERTENSION
     Route: 048
  2. SEREVENT [Concomitant]
     Route: 055
  3. NASONEX [Concomitant]
     Route: 045
  4. COMBIVENT [Concomitant]
     Route: 055
  5. LEXAPRO [Concomitant]
     Route: 048
  6. MEDROXYPROGESTERONE [Concomitant]
     Route: 048
  7. ESTRATEST [Concomitant]
     Route: 048
  8. ZITHROMAX [Concomitant]
     Route: 048
  9. CLARITIN [Concomitant]
     Route: 048

REACTIONS (1)
  - Oedema peripheral [Unknown]
